FAERS Safety Report 16356600 (Version 1)
Quarter: 2019Q2

REPORT INFORMATION
  Report Type: Spontaneous
  Country: AE (occurrence: AE)
  Receive Date: 20190527
  Receipt Date: 20190527
  Transmission Date: 20190711
  Serious: Yes (Life-Threatening, Other)
  Sender: FDA-Public Use
  Company Number: AE-SA-2018SA390674

PATIENT
  Age: 50 Year
  Sex: Male
  Weight: 79 kg

DRUGS (4)
  1. JENTADUETO [Concomitant]
     Active Substance: LINAGLIPTIN\METFORMIN HYDROCHLORIDE
     Indication: DYSLIPIDAEMIA
     Dosage: 50.17 MG, QD
     Route: 048
     Dates: start: 2014
  2. INSULIN GLARGINE [Suspect]
     Active Substance: INSULIN GLARGINE
     Dosage: 12 IU, QD
     Dates: start: 20181022
  3. FORXIGA [Concomitant]
     Active Substance: DAPAGLIFLOZIN
     Indication: DYSLIPIDAEMIA
     Dosage: 10 MG, QD
     Route: 048
     Dates: start: 2015
  4. DIAMICRON [Concomitant]
     Active Substance: GLICLAZIDE
     Indication: DYSLIPIDAEMIA
     Dosage: 60 IU, QD
     Route: 048
     Dates: start: 2012

REACTIONS (1)
  - Acute myocardial infarction [Recovered/Resolved]

NARRATIVE: CASE EVENT DATE: 20181128
